FAERS Safety Report 17226379 (Version 2)
Quarter: 2020Q1

REPORT INFORMATION
  Report Type: Spontaneous
  Country: DE (occurrence: DE)
  Receive Date: 20200102
  Receipt Date: 20200210
  Transmission Date: 20200409
  Serious: Yes (Hospitalization)
  Sender: FDA-Public Use
  Company Number: DE-ELI_LILLY_AND_COMPANY-DE201912011143

PATIENT
  Sex: Female

DRUGS (1)
  1. OLUMIANT [Suspect]
     Active Substance: BARICITINIB
     Indication: ANTISYNTHETASE SYNDROME
     Dosage: 4 MG, UNKNOWN
     Route: 065

REACTIONS (2)
  - Spinal stenosis [Not Recovered/Not Resolved]
  - Off label use [Unknown]
